FAERS Safety Report 6151962-6 (Version None)
Quarter: 2009Q2

REPORT INFORMATION
  Report Type: 
  Country: None (occurrence: None)
  Receive Date: 20090410
  Receipt Date: 20090326
  Transmission Date: 20091009
  Serious: Yes (Death)
  Sender: FDA-Public Use
  Company Number: US-GENENTECH-280705

PATIENT
  Age: 78 Year
  Sex: Male

DRUGS (10)
  1. ACTIVASE [Suspect]
     Indication: ISCHAEMIC STROKE
     Dosage: UNK
     Route: 042
  2. CAFFEINE [Suspect]
     Indication: ISCHAEMIC STROKE
     Dosage: 8-9 MG/KG
     Route: 042
  3. ETHANOL [Suspect]
     Indication: ISCHAEMIC STROKE
     Dosage: 0.4 G/KG, UNK
     Route: 042
  4. BUSPIRONE HCL [Concomitant]
     Indication: PROPHYLAXIS
     Dosage: 30 MG, UNK
     Route: 048
  5. BUSPIRONE HCL [Concomitant]
     Indication: CHILLS
  6. MEPERIDINE HCL [Concomitant]
     Indication: PROPHYLAXIS
     Dosage: 1 MG/KG, UNK
  7. MEPERIDINE HCL [Concomitant]
     Indication: CHILLS
     Dosage: 30 MG/HR, UNK
  8. MEPERIDINE HCL [Concomitant]
     Dosage: 25 MG, BOLUSES
  9. MAGNESIUM SULFATE [Concomitant]
     Indication: PROPHYLAXIS
     Dosage: 4 G, UNK
  10. MAGNESIUM SULFATE [Concomitant]
     Indication: CHILLS
     Dosage: 1 G/HR, UNK

REACTIONS (4)
  - CEREBROVASCULAR ACCIDENT [None]
  - FEMORAL ARTERY OCCLUSION [None]
  - PERIPHERAL ISCHAEMIA [None]
  - RESPIRATORY DISTRESS [None]
